FAERS Safety Report 24542579 (Version 1)
Quarter: 2024Q4

REPORT INFORMATION
  Report Type: Spontaneous
  Country: FR (occurrence: FR)
  Receive Date: 20241024
  Receipt Date: 20241024
  Transmission Date: 20250114
  Serious: Yes (Death)
  Sender: ACCORD
  Company Number: None

PATIENT
  Age: 72 Year
  Sex: Male
  Weight: 130 kg

DRUGS (3)
  1. CISPLATIN [Suspect]
     Active Substance: CISPLATIN
     Indication: Hepatic cancer
     Dosage: STRENGTH: 1 MG/ML, DOSE: 25 MG/METER SQUARE, 25MG/METER SQUARE OR 50MG ON D1 AND D8
     Dates: start: 20240807, end: 20240814
  2. DURVALUMAB [Concomitant]
     Active Substance: DURVALUMAB
     Indication: Hepatic cancer
     Dosage: J1
     Dates: start: 20240807, end: 20240807
  3. GEMCITABINE [Concomitant]
     Active Substance: GEMCITABINE
     Indication: Hepatic cancer
     Dosage: D1 AND D8
     Dates: start: 20240807, end: 20240814

REACTIONS (2)
  - Administration site extravasation [Fatal]
  - Septic shock [Fatal]

NARRATIVE: CASE EVENT DATE: 20240814
